FAERS Safety Report 6980133-6 (Version None)
Quarter: 2010Q3

REPORT INFORMATION
  Report Type: 
  Country: None (occurrence: None)
  Receive Date: 20100914
  Receipt Date: 20100902
  Transmission Date: 20110219
  Serious: Yes (Death, Hospitalization, Disabling)
  Sender: FDA-Public Use
  Company Number: US-PFIZER INC-2010055260

PATIENT
  Sex: Male

DRUGS (1)
  1. CHANTIX [Suspect]
     Indication: SMOKING CESSATION THERAPY
     Dosage: STARTING MONTH PACK
     Dates: start: 20070723, end: 20070802

REACTIONS (4)
  - ELECTROCUTION [None]
  - INTERNAL INJURY [None]
  - LOSS OF CONSCIOUSNESS [None]
  - THERMAL BURN [None]
